FAERS Safety Report 7883514-1 (Version None)
Quarter: 2011Q4

REPORT INFORMATION
  Report Type: 
  Country: None (occurrence: None)
  Receive Date: 20111102
  Receipt Date: 20111025
  Transmission Date: 20120403
  Serious: Yes (Hospitalization)
  Sender: FDA-Public Use
  Company Number: US-ASTELLAS-2011US007061

PATIENT
  Age: 52 Year
  Sex: Male
  Weight: 75 kg

DRUGS (2)
  1. PROGRAF [Suspect]
     Indication: LIVER TRANSPLANT
     Dosage: 2 MG AM, 1 MG PM
     Route: 048
     Dates: start: 20110318, end: 20110401
  2. ANIDULAFUNGIN; FLUCONAZOLE (CODE NOT BROKEN) [Suspect]
     Indication: ANTIFUNGAL PROPHYLAXIS
     Dosage: 200 MG, UID/QD
     Route: 042
     Dates: start: 20110318, end: 20110428

REACTIONS (2)
  - MENTAL STATUS CHANGES [None]
  - ABDOMINAL WALL DISORDER [None]
